FAERS Safety Report 7451208-2 (Version None)
Quarter: 2011Q2

REPORT INFORMATION
  Report Type: 
  Country: None (occurrence: None)
  Receive Date: 20110502
  Receipt Date: 20110421
  Transmission Date: 20111010
  Serious: Yes (Other)
  Sender: FDA-Public Use
  Company Number: JP-ASTRAZENECA-2011SE09586

PATIENT
  Age: 59 Year
  Sex: Female

DRUGS (2)
  1. CANDESARTAN CILEXETIL [Concomitant]
     Indication: HYPERTENSION
  2. ROPIVACAINE [Suspect]
     Indication: ABDOMINAL PAIN
     Dosage: 8-12 MG/H DAILY
     Route: 008
     Dates: start: 20070817, end: 20070820

REACTIONS (4)
  - HEADACHE [None]
  - HYPOTENSION [None]
  - VISION BLURRED [None]
  - POSTERIOR REVERSIBLE ENCEPHALOPATHY SYNDROME [None]
